FAERS Safety Report 10061383 (Version 1)
Quarter: 2014Q2

REPORT INFORMATION
  Report Type: Spontaneous
  Country: JP (occurrence: JP)
  Receive Date: 20140407
  Receipt Date: 20140407
  Transmission Date: 20141212
  Serious: No
  Sender: FDA-Public Use
  Company Number: JP-JNJFOC-20140317772

PATIENT
  Age: 7 Decade
  Sex: Male

DRUGS (2)
  1. DUROTEP MT [Suspect]
     Indication: CANCER PAIN
     Route: 062
     Dates: start: 20140314
  2. DUROTEP MT [Suspect]
     Indication: CANCER PAIN
     Route: 062

REACTIONS (2)
  - Wrong technique in drug usage process [Unknown]
  - Drug intolerance [Unknown]
